FAERS Safety Report 10983694 (Version 1)
Quarter: 2015Q2

REPORT INFORMATION
  Report Type: Spontaneous
  Country: US (occurrence: None)
  Receive Date: 20150402
  Receipt Date: 20150402
  Transmission Date: 20150821
  Serious: Yes (Other)
  Sender: FDA-Public Use
  Company Number: None

PATIENT
  Age: 71 Year
  Sex: Male
  Weight: 85.73 kg

DRUGS (1)
  1. CELECOXIB. [Suspect]
     Active Substance: CELECOXIB
     Indication: PAIN IN EXTREMITY
     Dosage: 1 PILL PER DAY, ONCE DAILY, TAKEN BY MOUTH
     Route: 048

REACTIONS (6)
  - Muscle spasms [None]
  - Pain in extremity [None]
  - Tendon pain [None]
  - Flushing [None]
  - Pruritus [None]
  - Myalgia [None]

NARRATIVE: CASE EVENT DATE: 20150303
